FAERS Safety Report 6162549-3 (Version None)
Quarter: 2009Q2

REPORT INFORMATION
  Report Type: 
  Country: None (occurrence: None)
  Receive Date: 20090421
  Receipt Date: 20090415
  Transmission Date: 20091009
  Serious: Yes (Congenital Anomaly, Other)
  Sender: FDA-Public Use
  Company Number: US-PFIZER INC-2007095363

PATIENT
  Sex: Male
  Weight: 4 kg

DRUGS (9)
  1. ZOLOFT [Suspect]
     Indication: DEPRESSION
     Route: 064
     Dates: start: 19990101
  2. ZOLOFT [Suspect]
     Indication: ANXIETY
  3. INSULIN, REGULAR [Concomitant]
     Indication: DIABETES MELLITUS
  4. XANAX [Concomitant]
     Indication: DEPRESSION
     Dosage: EVERY 8 HOURS AS NEEDED
  5. PREVACID [Concomitant]
     Indication: GASTROOESOPHAGEAL REFLUX DISEASE
  6. PRILOSEC [Concomitant]
     Indication: GASTROOESOPHAGEAL REFLUX DISEASE
  7. FERROUS SULFATE TAB [Concomitant]
     Indication: IRON DEFICIENCY
  8. VITAMIN TAB [Concomitant]
  9. INSULATARD NPH HUMAN [Concomitant]
     Indication: DIABETES MELLITUS

REACTIONS (9)
  - AORTIC DISORDER [None]
  - DEHYDRATION [None]
  - DRUG EXPOSURE DURING PREGNANCY [None]
  - HYPOXIA [None]
  - NEONATAL ASPIRATION [None]
  - PNEUMONIA BACTERIAL [None]
  - RESPIRATORY DISTRESS [None]
  - VASOCONSTRICTION [None]
  - VIRAL INFECTION [None]
